FAERS Safety Report 23944423 (Version 1)
Quarter: 2024Q2

REPORT INFORMATION
  Report Type: Spontaneous
  Country: US (occurrence: US)
  Receive Date: 20240606
  Receipt Date: 20240606
  Transmission Date: 20240716
  Serious: Yes (Other)
  Sender: FDA-Public Use
  Company Number: US-STRIDES ARCOLAB LIMITED-2024SP001576

PATIENT
  Age: 61 Year
  Sex: Male

DRUGS (15)
  1. ACYCLOVIR [Suspect]
     Active Substance: ACYCLOVIR
     Indication: Antiviral prophylaxis
     Dosage: 800 MILLIGRAM TWICE DAILY
     Route: 065
     Dates: start: 202105
  2. DOXORUBICIN [Concomitant]
     Active Substance: DOXORUBICIN
     Indication: Synovial sarcoma
     Dosage: UNK, CYCLICAL (RECEIVED UNDER AIM CHEMOTHERAPY, 1 CYCLICAL)
     Route: 065
     Dates: start: 2018
  3. DOXORUBICIN [Concomitant]
     Active Substance: DOXORUBICIN
     Dosage: UNK, CYCLICAL (UNK (RECEIVED TWO ADDITIONAL CYCLES; UNDER AIM CHEMOTHERAPY)
     Route: 065
  4. IFOSFAMIDE [Concomitant]
     Active Substance: IFOSFAMIDE
     Indication: Synovial sarcoma
     Dosage: UNK, CYCLICAL (RECEIVED UNDER AIM CHEMOTHERAPY ,1 CYCLICAL)
     Route: 065
     Dates: start: 2018
  5. IFOSFAMIDE [Concomitant]
     Active Substance: IFOSFAMIDE
     Dosage: UNK, CYCLICAL (RECEIVED TWO ADDITIONAL CYCLES; UNDER AIM CHEMOTHERAPY, CYCLICAL)
     Route: 065
  6. PAZOPANIB [Concomitant]
     Active Substance: PAZOPANIB
     Indication: Synovial sarcoma
     Dosage: CYCLICAL
     Route: 065
  7. PEMBROLIZUMAB [Concomitant]
     Active Substance: PEMBROLIZUMAB
     Indication: Synovial sarcoma
     Dosage: CYCLICAL
     Route: 065
  8. FLUDARABINE [Concomitant]
     Active Substance: FLUDARABINE PHOSPHATE
     Indication: Synovial sarcoma
     Dosage: 20 MILLIGRAM/SQ. METER
     Route: 065
     Dates: start: 202105
  9. CYCLOPHOSPHAMIDE [Concomitant]
     Active Substance: CYCLOPHOSPHAMIDE
     Indication: Synovial sarcoma
     Dosage: 600?MG/M2
     Route: 065
     Dates: start: 202105
  10. TRABECTEDIN [Concomitant]
     Active Substance: TRABECTEDIN
     Indication: Synovial sarcoma
     Dosage: UNK, CYCLICAL (RECEIVED TWO CYCLES)
     Route: 065
     Dates: start: 202112, end: 202202
  11. TOCILIZUMAB [Concomitant]
     Active Substance: TOCILIZUMAB
     Indication: Cytokine release syndrome
     Dosage: UNK
     Route: 065
  12. TOCILIZUMAB [Concomitant]
     Active Substance: TOCILIZUMAB
     Indication: Immune effector cell-associated neurotoxicity syndrome
  13. DEXAMETHASONE [Concomitant]
     Active Substance: DEXAMETHASONE
     Indication: Cytokine release syndrome
     Dosage: UNK
     Route: 065
  14. DEXAMETHASONE [Concomitant]
     Active Substance: DEXAMETHASONE
     Indication: Immune effector cell-associated neurotoxicity syndrome
  15. SALINE [Concomitant]
     Active Substance: SODIUM CHLORIDE
     Indication: Hypotension
     Dosage: UNK
     Route: 040

REACTIONS (1)
  - Drug ineffective [Unknown]
